FAERS Safety Report 6583858-X (Version None)
Quarter: 2010Q1

REPORT INFORMATION
  Report Type: 
  Country: None (occurrence: None)
  Receive Date: 20100216
  Receipt Date: 20091124
  Transmission Date: 20100710
  Serious: No
  Sender: FDA-Public Use
  Company Number: US-ABBOTT-09P-163-0611215-00

PATIENT
  Sex: Male
  Weight: 99.88 kg

DRUGS (3)
  1. SIMCOR [Suspect]
     Indication: BLOOD CHOLESTEROL INCREASED
     Dosage: 500/20 MG PER DAY
     Dates: start: 20090901, end: 20091123
  2. SIMCOR [Suspect]
     Dosage: 1000/40 MG PER DAY
     Dates: start: 20091123, end: 20091124
  3. SIMCOR [Suspect]
     Dosage: 500/20 MG PER DAY
     Dates: start: 20091124

REACTIONS (1)
  - FLUSHING [None]
